FAERS Safety Report 15746258 (Version 3)
Quarter: 2019Q3

REPORT INFORMATION
  Report Type: Spontaneous
  Country: US (occurrence: US)
  Receive Date: 20181220
  Receipt Date: 20190729
  Transmission Date: 20191004
  Serious: Yes (Other)
  Sender: FDA-Public Use
  Company Number: US-SA-2018SA341588

PATIENT
  Age: 47 Year
  Sex: Female

DRUGS (25)
  1. ZADITOR [KETOTIFEN] [Concomitant]
     Dosage: PLACE IN AFFECTED EYE TWO TIMES DAILY AS NEEDED FOR EYE ITCHING
     Dates: start: 20120621, end: 20140820
  2. MELATONIN [Concomitant]
     Active Substance: MELATONIN
     Dosage: UNK UNK, HS TAKE 1 TO 2 TABLETS 1 HOUR BEFORE BEDTIME
     Dates: start: 20120410, end: 20140910
  3. ACTOS [Concomitant]
     Active Substance: PIOGLITAZONE HYDROCHLORIDE
     Dosage: 15 MG, QD
     Route: 048
     Dates: start: 20120626, end: 20130708
  4. LIPITOR [Concomitant]
     Active Substance: ATORVASTATIN CALCIUM
     Dosage: 40 MG, HS
     Route: 048
     Dates: start: 20121015, end: 20140612
  5. FISH OIL [Concomitant]
     Active Substance: FISH OIL
     Dosage: 1000 MG, QD
     Route: 048
  6. AMBIEN [Concomitant]
     Active Substance: ZOLPIDEM TARTRATE
     Dosage: 10 MG, HS TAKE 1 TABLET AT BEDTIME AND MAY REPEAT WITH 1/2 TO 1 TABLET DURING THE NIGHT IF NEEDED
     Route: 065
     Dates: start: 20121017, end: 20130408
  7. BUSPAR [Concomitant]
     Active Substance: BUSPIRONE HYDROCHLORIDE
     Dosage: 15 MG, TID
     Route: 048
  8. LAMICTAL [Concomitant]
     Active Substance: LAMOTRIGINE
     Dosage: UNK UNK, HS TAKE 1 1/2 TABLETS AT BEDTIME
     Dates: start: 20120621, end: 20121212
  9. ZOLOFT [Concomitant]
     Active Substance: SERTRALINE HYDROCHLORIDE
     Dosage: 2.5 DF, QD
     Route: 048
     Dates: start: 20121017, end: 20131030
  10. TAXOTERE [Suspect]
     Active Substance: DOCETAXEL
     Dosage: 146 MG Q3W
     Route: 042
     Dates: start: 20130213, end: 20130213
  11. VENTOLIN HFA [Concomitant]
     Active Substance: ALBUTEROL SULFATE
     Dosage: INHALE 2 PUFFS EVERY 4 HOURS AS NEEDED. - INHALATION
     Route: 055
     Dates: start: 20120621, end: 20150427
  12. WELLBUTRIN [Concomitant]
     Active Substance: BUPROPION HYDROCHLORIDE
     Dosage: 450 MG, QD
     Dates: start: 20120621, end: 20130612
  13. TAXOTERE [Suspect]
     Active Substance: DOCETAXEL
     Indication: BREAST CANCER FEMALE
     Dosage: 146 MG Q3W
     Route: 042
     Dates: start: 20121212, end: 20121212
  14. LANTUS [Concomitant]
     Active Substance: INSULIN GLARGINE
     Dosage: 60 U, BID
     Dates: start: 20120508, end: 20130708
  15. IMODIUM [Concomitant]
     Active Substance: LOPERAMIDE HYDROCHLORIDE
     Dosage: 2 MG, BID
     Route: 048
     Dates: start: 20120918, end: 20130214
  16. CLARITIN-D NOS [Concomitant]
     Active Substance: LORATADINE\PSEUDOEPHEDRINE SULFATE
     Dosage: UNK TAKE 1 TAB BY MOUTH EVERY 12 HOURS. -ORAL
     Route: 048
     Dates: start: 20120621, end: 20130814
  17. GLUCOPHAGE [Concomitant]
     Active Substance: METFORMIN HYDROCHLORIDE
     Dosage: 500 MG, QD
     Route: 048
     Dates: start: 20120626, end: 20130708
  18. CYTOXAN [Concomitant]
     Active Substance: CYCLOPHOSPHAMIDE
     Dosage: UNK
  19. KLONOPIN [Concomitant]
     Active Substance: CLONAZEPAM
     Dosage: 0.5 MG, HS
     Route: 048
     Dates: start: 20121017, end: 20130408
  20. NEURONTIN [Concomitant]
     Active Substance: GABAPENTIN
     Dosage: ONE TWICE IN DAY AND 2 AT NIGHT FOR PERIMENAPAUSE
     Dates: start: 20120621, end: 20130710
  21. FLONASE [Concomitant]
     Active Substance: FLUTICASONE PROPIONATE
     Dosage: 50 UG, BID
     Route: 045
     Dates: start: 20120621, end: 20140527
  22. LACTAID FAST ACT [Concomitant]
     Active Substance: LACTASE
     Dosage: UNK ONE TAB WITH MEALS AS NEEDED
     Dates: start: 20120712, end: 20160229
  23. LOPRESSOR [Concomitant]
     Active Substance: METOPROLOL TARTRATE
     Dosage: 50 MG, BID
     Route: 048
     Dates: start: 20120613, end: 20130608
  24. LOTENSIN [Concomitant]
     Active Substance: BENAZEPRIL HYDROCHLORIDE
     Dosage: 10 MG, QD
     Route: 048
     Dates: start: 20120918, end: 20130927
  25. CHOLESTYRAMINE. [Concomitant]
     Active Substance: CHOLESTYRAMINE
     Dosage: 4 G, QD
     Route: 048
     Dates: start: 20120814, end: 20130408

REACTIONS (3)
  - Alopecia [Not Recovered/Not Resolved]
  - Psychological trauma [Unknown]
  - Emotional distress [Unknown]

NARRATIVE: CASE EVENT DATE: 201211
